FAERS Safety Report 15238210 (Version 1)
Quarter: 2018Q3

REPORT INFORMATION
  Report Type: Spontaneous
  Country: US (occurrence: US)
  Receive Date: 20180710
  Receipt Date: 20180710
  Transmission Date: 20181010
  Serious: No
  Sender: FDA-Public Use
  Company Number: None

PATIENT

DRUGS (1)
  1. DOXYCYCLINE CAPSULES [Suspect]
     Active Substance: DOXYCYCLINE
     Route: 048

REACTIONS (3)
  - Drug dispensing issue [None]
  - Product lot number issue [None]
  - Product expiration date issue [None]

NARRATIVE: CASE EVENT DATE: 20180710
